FAERS Safety Report 4267358-8 (Version None)
Quarter: 2004Q1

REPORT INFORMATION
  Report Type: 
  Country: None (occurrence: None)
  Receive Date: 20040107
  Receipt Date: 20031226
  Transmission Date: 20041129
  Serious: Yes (Hospitalization)
  Sender: FDA-Public Use
  Company Number: 12465563

PATIENT
  Age: 47 Year
  Sex: Female

DRUGS (4)
  1. CEPHALEXIN [Suspect]
     Indication: RASH PAPULAR
  2. DILTIAZEM HCL [Suspect]
     Indication: HYPERTENSION
  3. ANTIHISTAMINE DRUGS [Concomitant]
  4. PREDNISONE [Concomitant]

REACTIONS (4)
  - ACUTE GENERALISED EXANTHEMATOUS PUSTULOSIS [None]
  - NEUTROPHIL PERCENTAGE INCREASED [None]
  - SKIN HYPERPIGMENTATION [None]
  - WHITE BLOOD CELL COUNT INCREASED [None]
